FAERS Safety Report 20848037 (Version 3)
Quarter: 2022Q3

REPORT INFORMATION
  Report Type: Spontaneous
  Country: CA (occurrence: None)
  Receive Date: 20220519
  Receipt Date: 20220825
  Transmission Date: 20221026
  Serious: Yes (Other)
  Sender: FDA-Public Use
  Company Number: CA-ROCHE-3095207

PATIENT
  Age: 59 Year
  Sex: Female

DRUGS (12)
  1. ACTEMRA [Suspect]
     Active Substance: TOCILIZUMAB
     Indication: Rheumatoid arthritis
     Dosage: DURATION-1 YEARS
     Route: 058
  2. ACTEMRA [Suspect]
     Active Substance: TOCILIZUMAB
     Route: 058
  3. ACTEMRA [Suspect]
     Active Substance: TOCILIZUMAB
     Route: 058
  4. VAXZEVRIA [Suspect]
     Active Substance: AZD-1222
     Indication: COVID-19 immunisation
     Dosage: SOLUTION INTRAMUSCULAR?VAXZEVRIA VIAL CONTAINS 10 DOSES OF 0.5ML
     Route: 030
  5. VAXZEVRIA [Suspect]
     Active Substance: AZD-1222
     Route: 030
  6. ARAVA [Concomitant]
     Active Substance: LEFLUNOMIDE
     Dosage: DRUG DOSE FIRST ADMINISTERED IS NOT PROVIDED
     Route: 065
  7. COLACE [Concomitant]
     Active Substance: DOCUSATE SODIUM
     Route: 065
  8. IRON [Concomitant]
     Active Substance: IRON
     Route: 065
  9. PREDNISONE [Concomitant]
     Active Substance: PREDNISONE
  10. PANTOPRAZOLE [Concomitant]
     Active Substance: PANTOPRAZOLE
  11. NAPROXEN [Concomitant]
     Active Substance: NAPROXEN
     Route: 065
  12. TYLENOL [Concomitant]
     Active Substance: ACETAMINOPHEN

REACTIONS (8)
  - Mean cell volume decreased [Recovered/Resolved]
  - Joint swelling [Recovered/Resolved]
  - Mean cell haemoglobin decreased [Recovered/Resolved]
  - Renal impairment [Recovered/Resolved]
  - Arthralgia [Recovered/Resolved]
  - Headache [Recovered/Resolved]
  - Low density lipoprotein increased [Recovered/Resolved]
  - Periorbital pain [Recovered/Resolved]
